FAERS Safety Report 17415103 (Version 1)
Quarter: 2020Q1

REPORT INFORMATION
  Report Type: Other
  Country: SE (occurrence: SE)
  Receive Date: 20200213
  Receipt Date: 20200213
  Transmission Date: 20200409
  Serious: Yes (Hospitalization)
  Sender: FDA-Public Use
  Company Number: SE-DENTSPLY-2020SCDP000038

PATIENT
  Age: 68 Year
  Sex: Female

DRUGS (4)
  1. MEPIVACAINE [Suspect]
     Active Substance: MEPIVACAINE HYDROCHLORIDE
     Indication: DENTAL LOCAL ANAESTHESIA
     Dosage: 1.8 MILLILITER
     Dates: start: 20181030, end: 20181030
  2. ASPIRIN [ACETYLSALICYLIC ACID] [Concomitant]
     Active Substance: ASPIRIN
     Indication: PRODUCT USED FOR UNKNOWN INDICATION
     Dosage: UNK
     Dates: start: 20181027
  3. CITANEST DENTAL OCTAPRESSIN 30 M G/ML + 0 INJEKTIONSV [Suspect]
     Active Substance: FELYPRESSIN\PRILOCAINE
     Indication: DENTAL LOCAL ANAESTHESIA
     Dosage: 1.8 MILLILITER
     Dates: start: 20181030, end: 20181030
  4. LEVAXIN [Concomitant]
     Active Substance: LEVOTHYROXINE SODIUM
     Indication: PRODUCT USED FOR UNKNOWN INDICATION
     Dosage: UNK

REACTIONS (1)
  - Anaphylactic reaction [Unknown]

NARRATIVE: CASE EVENT DATE: 20181030
